FAERS Safety Report 5599497-3 (Version None)
Quarter: 2008Q1

REPORT INFORMATION
  Report Type: 
  Country: None (occurrence: None)
  Receive Date: 20080123
  Receipt Date: 20080115
  Transmission Date: 20080703
  Serious: Yes (Congenital Anomaly)
  Sender: FDA-Public Use
  Company Number: GB-JNJFOC-20070605769

PATIENT

DRUGS (3)
  1. INFLIXIMAB [Suspect]
     Indication: DRUG EXPOSURE DURING PREGNANCY
     Route: 064
  2. AZATHIOPRINE [Suspect]
     Indication: DRUG EXPOSURE DURING PREGNANCY
     Route: 064
  3. FOLIC ACID [Concomitant]
     Indication: DRUG EXPOSURE DURING PREGNANCY
     Route: 064

REACTIONS (1)
  - CYST [None]
